FAERS Safety Report 10519474 (Version 4)
Quarter: 2015Q3

REPORT INFORMATION
  Report Type: Report from Study
  Country: US (occurrence: US)
  Receive Date: 20141015
  Receipt Date: 20150810
  Transmission Date: 20151125
  Serious: Yes (Other)
  Sender: FDA-Public Use
  Company Number: US-SA-2014SA108616

PATIENT
  Sex: Male

DRUGS (2)
  1. AMPYRA [Concomitant]
     Active Substance: DALFAMPRIDINE
     Indication: MULTIPLE SCLEROSIS
     Dates: start: 20110701
  2. AUBAGIO [Suspect]
     Active Substance: TERIFLUNOMIDE
     Indication: MULTIPLE SCLEROSIS
     Route: 048
     Dates: start: 20130701

REACTIONS (13)
  - Abdominal discomfort [Not Recovered/Not Resolved]
  - Impaired driving ability [Unknown]
  - Unevaluable event [Unknown]
  - Asthenia [Unknown]
  - Feeling abnormal [Unknown]
  - Soft tissue atrophy [Unknown]
  - Sensory loss [Unknown]
  - Nerve compression [Unknown]
  - Hypokinesia [Unknown]
  - Bladder discomfort [Not Recovered/Not Resolved]
  - Gait disturbance [Unknown]
  - Accident [Unknown]
  - Malaise [Not Recovered/Not Resolved]
